FAERS Safety Report 20312419 (Version 1)
Quarter: 2022Q1

REPORT INFORMATION
  Report Type: Spontaneous
  Country: US (occurrence: None)
  Receive Date: 20220107
  Receipt Date: 20220107
  Transmission Date: 20220423
  Serious: Yes (Hospitalization)
  Sender: FDA-Public Use
  Company Number: None

PATIENT
  Sex: Female

DRUGS (8)
  1. VERZENIO [Suspect]
     Active Substance: ABEMACICLIB
     Indication: Breast cancer female
     Dosage: TAKE 1 TABLET BY MOUTH  TWICE DAILY
     Route: 048
     Dates: start: 20211112
  2. VERZENIO [Suspect]
     Active Substance: ABEMACICLIB
     Dosage: FREQUENCY : TWICE A DAY;?
     Route: 048
  3. ATORVASTATIN [Concomitant]
     Active Substance: ATORVASTATIN
  4. FLONASE ALGY SPR [Concomitant]
  5. GABAPENTIN [Concomitant]
     Active Substance: GABAPENTIN
  6. LETROZOLE [Concomitant]
     Active Substance: LETROZOLE
  7. LISINOPRIL [Concomitant]
     Active Substance: LISINOPRIL
  8. VERZENIO [Concomitant]
     Active Substance: ABEMACICLIB

REACTIONS (2)
  - Nausea [None]
  - Gastrointestinal haemorrhage [None]
